FAERS Safety Report 5164199-4 (Version None)
Quarter: 2006Q4

REPORT INFORMATION
  Report Type: 
  Country: None (occurrence: None)
  Receive Date: 20060918
  Receipt Date: 20051026
  Transmission Date: 20070319
  Serious: Yes (Other)
  Sender: FDA-Public Use
  Company Number: US-JNJFOC-20050805935

PATIENT
  Age: 43 Year
  Sex: Male
  Weight: 108.8633 kg

DRUGS (8)
  1. TOPAMAX [Suspect]
     Indication: PAIN MANAGEMENT
  2. LEXAPRO [Suspect]
     Indication: PAIN MANAGEMENT
     Dosage: SEE IMAGE
     Route: 048
  3. MORPHINE SULFATE [Concomitant]
  4. CLONIDINE [Concomitant]
  5. XANAX [Concomitant]
  6. CANNABIS [Concomitant]
  7. NEXIUM [Concomitant]
  8. CHEMOTHERAPY (ANTINEOPLASTIC AGENTS) [Concomitant]

REACTIONS (3)
  - ADVERSE DRUG REACTION [None]
  - THERAPEUTIC RESPONSE UNEXPECTED [None]
  - WEIGHT DECREASED [None]
